FAERS Safety Report 6823866-4 (Version None)
Quarter: 2010Q3

REPORT INFORMATION
  Report Type: 
  Country: None (occurrence: None)
  Receive Date: 20100708
  Receipt Date: 20060915
  Transmission Date: 20110219
  Serious: No
  Sender: FDA-Public Use
  Company Number: US-PFIZER INC-2006113736

PATIENT
  Sex: Female
  Weight: 102.51 kg

DRUGS (22)
  1. CHANTIX [Suspect]
     Indication: EX-TOBACCO USER
  2. NEURONTIN [Concomitant]
  3. RELAFEN [Concomitant]
  4. PREVACID [Concomitant]
  5. CYANOCOBALAMIN [Concomitant]
  6. ALBUTEROL [Concomitant]
  7. COMBIVENT [Concomitant]
  8. SEROQUEL [Concomitant]
  9. GLUCOVANCE [Concomitant]
  10. RANITIDINE [Concomitant]
  11. GABAPENTIN [Concomitant]
  12. LIPITOR [Concomitant]
  13. PROVIGIL [Concomitant]
  14. LEXAPRO [Concomitant]
  15. TIZANIDINE [Concomitant]
  16. LACTULOSE [Concomitant]
  17. NABUMETONE [Concomitant]
  18. TRICOR [Concomitant]
  19. MORPHINE [Concomitant]
  20. LORTAB [Concomitant]
  21. LIDODERM [Concomitant]
  22. PREDNISONE [Concomitant]
     Dates: start: 20060901

REACTIONS (5)
  - DEPRESSION [None]
  - DYSGEUSIA [None]
  - NAUSEA [None]
  - VOMITING [None]
  - WEIGHT INCREASED [None]
